FAERS Safety Report 11525413 (Version 1)
Quarter: 2015Q3

REPORT INFORMATION
  Report Type: Spontaneous
  Country: GB (occurrence: GB)
  Receive Date: 20150918
  Receipt Date: 20150918
  Transmission Date: 20151125
  Serious: Yes (Other)
  Sender: FDA-Public Use
  Company Number: GB-GILEAD-2015-0167940

PATIENT
  Age: 75 Year
  Sex: Male

DRUGS (13)
  1. RANOLAZINE [Suspect]
     Active Substance: RANOLAZINE
     Indication: ANGINA UNSTABLE
     Dosage: 375 MG, BID
     Route: 065
     Dates: start: 201508
  2. CANDESARTAN [Concomitant]
     Active Substance: CANDESARTAN
     Dosage: 2 MG, QD
     Dates: start: 2015
  3. ATENOLOL. [Concomitant]
     Active Substance: ATENOLOL
     Dosage: 25 MG, QD
  4. TAMSULOSIN [Concomitant]
     Active Substance: TAMSULOSIN
     Dosage: 400 MCG, QD
  5. COCODAMOL [Concomitant]
     Active Substance: ACETAMINOPHEN\CODEINE PHOSPHATE
     Dosage: 30/500 MG
  6. TYLEX                              /00020001/ [Concomitant]
     Indication: NECK PAIN
  7. GTN [Concomitant]
     Active Substance: NITROGLYCERIN
     Dosage: 400 MCG, PRN
  8. ATORVASTATIN [Concomitant]
     Active Substance: ATORVASTATIN
     Dosage: 20 MG, QD
  9. ISOSORBIDE MONONITRATE. [Concomitant]
     Active Substance: ISOSORBIDE MONONITRATE
     Dosage: 30 MG, QD
  10. ASPIRIN                            /00002701/ [Concomitant]
     Active Substance: ASPIRIN
     Dosage: 75 MG, QD
  11. LANSOPRAZOLE. [Concomitant]
     Active Substance: LANSOPRAZOLE
     Dosage: 30 MG, QD
  12. NICORANDIL [Concomitant]
     Active Substance: NICORANDIL
     Dosage: 20 MG, BID
  13. POTASSIUM BICARBONATE W/SODIUM ALGINATE [Concomitant]
     Dosage: 10 ML, QHS

REACTIONS (5)
  - Neck pain [Recovered/Resolved]
  - Headache [Unknown]
  - Off label use [Not Recovered/Not Resolved]
  - Dizziness [Not Recovered/Not Resolved]
  - Orthostatic hypotension [Unknown]

NARRATIVE: CASE EVENT DATE: 2015
